FAERS Safety Report 13730091 (Version 2)
Quarter: 2017Q3

REPORT INFORMATION
  Report Type: Spontaneous
  Country: US (occurrence: US)
  Receive Date: 20170707
  Receipt Date: 20170922
  Transmission Date: 20171127
  Serious: Yes (Hospitalization)
  Sender: FDA-Public Use
  Company Number: US-JNJFOC-20170515495

PATIENT
  Age: 71 Year
  Sex: Female
  Weight: 58.74 kg

DRUGS (9)
  1. SENOKOT [Concomitant]
     Active Substance: SENNOSIDES
     Route: 065
  2. TUMS [Concomitant]
     Active Substance: CALCIUM CARBONATE
     Route: 065
  3. SUTENT [Suspect]
     Active Substance: SUNITINIB MALATE
     Indication: RENAL CANCER METASTATIC
     Dosage: TAKES TWO WEEKS AND OFF ONE WEEK
     Route: 065
     Dates: start: 20170413
  4. SUTENT [Suspect]
     Active Substance: SUNITINIB MALATE
     Indication: RENAL CANCER METASTATIC
     Dosage: TAKES TWO WEEKS AND OFF ONE WEEK
     Route: 065
     Dates: start: 2017
  5. PROTONIX [Concomitant]
     Active Substance: PANTOPRAZOLE SODIUM
     Indication: GASTRIC DISORDER
     Route: 065
     Dates: start: 201702
  6. FERROUS SULFATE. [Concomitant]
     Active Substance: FERROUS SULFATE
     Route: 065
  7. TYLENOL PM [Concomitant]
     Active Substance: ACETAMINOPHEN\DIPHENHYDRAMINE
     Route: 065
  8. XARELTO [Suspect]
     Active Substance: RIVAROXABAN
     Indication: PELVIC VENOUS THROMBOSIS
     Route: 048
     Dates: start: 20170413, end: 20170414
  9. CARAFATE [Concomitant]
     Active Substance: SUCRALFATE
     Route: 065

REACTIONS (2)
  - Gastrointestinal haemorrhage [Unknown]
  - Tumour haemorrhage [Recovered/Resolved]

NARRATIVE: CASE EVENT DATE: 201704
